FAERS Safety Report 5605680-0 (Version None)
Quarter: 2008Q1

REPORT INFORMATION
  Report Type: 
  Country: None (occurrence: None)
  Receive Date: 20080123
  Receipt Date: 20080115
  Transmission Date: 20080703
  Serious: Yes (Death, Hospitalization)
  Sender: FDA-Public Use
  Company Number: 430001E08ITA

PATIENT
  Age: 73 Year
  Sex: Male

DRUGS (10)
  1. NOVANTRONE [Suspect]
     Dosage: INTRAVENOUS
     Route: 042
     Dates: start: 20070331, end: 20070101
  2. GEMTUZUMAB OZOGAMICIN (GEMTUZUMAB OZOGAMICIN) [Suspect]
     Dosage: INTRAVENOUS, INTRAVENOUS
     Route: 042
     Dates: start: 20070302, end: 20070101
  3. GEMTUZUMAB OZOGAMICIN (GEMTUZUMAB OZOGAMICIN) [Suspect]
     Dosage: INTRAVENOUS, INTRAVENOUS
     Route: 042
     Dates: start: 20070520, end: 20070520
  4. ARA-C (CYTARABINE) (CYTARABINE) [Suspect]
     Dosage: INTRAVENOUS, INTRAVENOUS
     Route: 042
     Dates: start: 20070331, end: 20070101
  5. ARA-C (CYTARABINE) (CYTARABINE) [Suspect]
     Dosage: INTRAVENOUS, INTRAVENOUS
     Route: 042
     Dates: start: 20070521, end: 20070525
  6. ETOPOSIDE [Suspect]
     Dosage: INTRAVENOUS, INTRAVENOUS
     Route: 042
     Dates: start: 20070331, end: 20070101
  7. ETOPOSIDE [Suspect]
     Dosage: INTRAVENOUS, INTRAVENOUS
     Route: 042
     Dates: start: 20070521, end: 20070523
  8. IDARUBICIN HCL [Suspect]
     Dosage: INTRAVENOUS, INTRAVENOUS
     Route: 042
     Dates: start: 20070331, end: 20070505
  9. IDARUBICIN HCL [Suspect]
     Dosage: INTRAVENOUS, INTRAVENOUS
     Route: 042
     Dates: start: 20070521, end: 20070525
  10. PIPERACILLIN AND TAZOBACTAM [Concomitant]

REACTIONS (8)
  - ANAL ABSCESS [None]
  - ATRIAL FIBRILLATION [None]
  - CARDIAC ARREST [None]
  - ENTERITIS [None]
  - FEBRILE NEUTROPENIA [None]
  - PLEURAL EFFUSION [None]
  - PYREXIA [None]
  - SUDDEN DEATH [None]
